FAERS Safety Report 7490600-7 (Version None)
Quarter: 2011Q2

REPORT INFORMATION
  Report Type: 
  Country: None (occurrence: None)
  Receive Date: 20110518
  Receipt Date: 20110518
  Transmission Date: 20111010
  Serious: No
  Sender: FDA-Public Use
  Company Number: None

PATIENT
  Sex: Male

DRUGS (2)
  1. TEGRETOL [Suspect]
     Indication: EPILEPSY
     Dosage: 200 MG QID PO PRIOR TO 1994
     Route: 048
  2. TEGRETOL [Suspect]
     Indication: EPILEPSY
     Dosage: 100 MG QHS PO PRIOR TO 1994
     Route: 048

REACTIONS (1)
  - PRODUCT SUBSTITUTION ISSUE [None]
